FAERS Safety Report 7469445-X (Version None)
Quarter: 2011Q2

REPORT INFORMATION
  Report Type: 
  Country: None (occurrence: None)
  Receive Date: 20110510
  Receipt Date: 20110426
  Transmission Date: 20111010
  Serious: Yes (Hospitalization)
  Sender: FDA-Public Use
  Company Number: US-CELGENEUS-163-21880-11022923

PATIENT
  Sex: Female

DRUGS (8)
  1. ARICEPT [Concomitant]
     Dosage: 10 MILLIGRAM
     Route: 048
  2. VICODIN [Concomitant]
     Dosage: 5-500MG
     Route: 048
  3. CHOLESTYRAMINE [Concomitant]
     Dosage: 4 GRAM
     Route: 048
  4. COLCHICINE [Concomitant]
     Dosage: .6 MILLIGRAM
     Route: 048
  5. VOLTAREN [Concomitant]
     Route: 062
  6. ATENOLOL AND CHLORTHALIDONE [Concomitant]
     Dosage: 100-25MG
     Route: 048
  7. NEXIUM [Concomitant]
     Dosage: 40 MILLIGRAM
     Route: 048
  8. REVLIMID [Suspect]
     Indication: LYMPHOMA
     Dosage: 10 MILLIGRAM
     Route: 048
     Dates: start: 20110125, end: 20110201

REACTIONS (13)
  - ABDOMINAL TENDERNESS [None]
  - ABDOMINAL PAIN [None]
  - BACK PAIN [None]
  - NIGHT SWEATS [None]
  - PRURITUS [None]
  - ABDOMINAL DISTENSION [None]
  - DIZZINESS [None]
  - PANCYTOPENIA [None]
  - WHITE BLOOD CELL COUNT DECREASED [None]
  - VOMITING [None]
  - NAUSEA [None]
  - PRURITUS GENERALISED [None]
  - BONE MARROW FAILURE [None]
